FAERS Safety Report 6370769-8 (Version None)
Quarter: 2009Q3

REPORT INFORMATION
  Report Type: 
  Country: None (occurrence: None)
  Receive Date: 20090923
  Receipt Date: 20070413
  Transmission Date: 20100115
  Serious: Yes (Other)
  Sender: FDA-Public Use
  Company Number: US-ASTRAZENECA-2006UW24830

PATIENT
  Age: 571 Month
  Sex: Female
  Weight: 77.1 kg

DRUGS (17)
  1. SEROQUEL [Suspect]
     Indication: SLEEP DISORDER
     Route: 048
     Dates: start: 20060301, end: 20060401
  2. SEROQUEL [Suspect]
     Route: 048
     Dates: start: 20060301, end: 20060401
  3. ZYPREXA [Concomitant]
     Route: 065
  4. NEXIUM [Concomitant]
     Route: 065
  5. TRAZODONE [Concomitant]
     Route: 048
  6. LISINOPRIL [Concomitant]
     Route: 048
  7. ERY-TAB [Concomitant]
     Route: 065
  8. ACYCLOVIR [Concomitant]
     Route: 065
  9. CEFACLOR [Concomitant]
     Route: 065
  10. CLONAZEPAM [Concomitant]
     Route: 048
  11. DEPAKOTE ER [Concomitant]
     Route: 065
  12. GLIPIZIDE [Concomitant]
     Route: 065
  13. FLUCONAZOLE [Concomitant]
     Route: 065
  14. CYMBALTA [Concomitant]
     Dosage: STRENGTH-30 MG, 60 MG
     Route: 065
  15. LAMICTAL [Concomitant]
     Dosage: STRENGTH-100 MG, 200 MG
     Route: 065
  16. CEPHALEXIN [Concomitant]
     Route: 065
  17. KETOCONAZOLE 2% CREAM [Concomitant]
     Dosage: APPLY ONCE DAILY
     Route: 065

REACTIONS (10)
  - BACK PAIN [None]
  - CHEST PAIN [None]
  - CONSTIPATION [None]
  - COUGH [None]
  - DIABETES MELLITUS [None]
  - DYSURIA [None]
  - HEADACHE [None]
  - NECK PAIN [None]
  - OROPHARYNGEAL PAIN [None]
  - SYNCOPE [None]
